FAERS Safety Report 12965435 (Version 1)
Quarter: 2016Q4

REPORT INFORMATION
  Report Type: Spontaneous
  Country: US (occurrence: US)
  Receive Date: 20161122
  Receipt Date: 20161122
  Transmission Date: 20170207
  Serious: Yes (Other)
  Sender: FDA-Public Use
  Company Number: US-ARBOR PHARMACEUTICALS, LLC-US-2016ARB002337

PATIENT
  Age: 36 Year
  Sex: Male

DRUGS (2)
  1. DEXTROAMPHETAMINE                  /00016601/ [Suspect]
     Active Substance: DEXTROAMPHETAMINE
     Indication: PRODUCT USED FOR UNKNOWN INDICATION
     Dosage: UNK
  2. AMPHETAMINE SULFATE [Suspect]
     Active Substance: AMPHETAMINE SULFATE
     Indication: PRODUCT USED FOR UNKNOWN INDICATION
     Dosage: UNK

REACTIONS (8)
  - Cerebral haemorrhage [Unknown]
  - Muscle rigidity [Unknown]
  - Mydriasis [Unknown]
  - Hyperhidrosis [Unknown]
  - Coma [Unknown]
  - Clonus [Unknown]
  - Seizure [Unknown]
  - Hyperreflexia [Unknown]
